FAERS Safety Report 5044256-3 (Version None)
Quarter: 2006Q3

REPORT INFORMATION
  Report Type: 
  Country: None (occurrence: None)
  Receive Date: 20060706
  Receipt Date: 20060615
  Transmission Date: 20061208
  Serious: Yes (Other)
  Sender: FDA-Public Use
  Company Number: PHEH2006US07861

PATIENT
  Age: 13 Year
  Sex: Female
  Weight: 49.886 kg

DRUGS (4)
  1. FOCALIN XR [Suspect]
     Indication: ATTENTION DEFICIT/HYPERACTIVITY DISORDER
     Dosage: 10 MG, QD IN A.M.
     Route: 048
     Dates: start: 20050801
  2. SEROQUEL [Concomitant]
     Indication: BIPOLAR DISORDER
     Dosage: 125 MG, UNK
     Route: 048
     Dates: start: 20050801
  3. ZOLOFT [Concomitant]
     Indication: DEPRESSION
     Dosage: 75 MG, QD IN THE A.M.
     Route: 048
     Dates: start: 20050801
  4. DEPAKOTE [Concomitant]
     Indication: AFFECTIVE DISORDER
     Dosage: 500 MG, UNK
     Route: 048
     Dates: start: 20050801

REACTIONS (2)
  - ATRIOVENTRICULAR BLOCK FIRST DEGREE [None]
  - ELECTROCARDIOGRAM ABNORMAL [None]
